FAERS Safety Report 13301871 (Version 11)
Quarter: 2017Q4

REPORT INFORMATION
  Report Type: Spontaneous
  Country: US (occurrence: US)
  Receive Date: 20170307
  Receipt Date: 20171025
  Transmission Date: 20180320
  Serious: Yes (Other)
  Sender: FDA-Public Use
  Company Number: PHEH2017US006771

PATIENT
  Sex: Female
  Weight: 81.63 kg

DRUGS (2)
  1. ZOFRAN [Suspect]
     Active Substance: ONDANSETRON HYDROCHLORIDE
     Indication: PRODUCT USED FOR UNKNOWN INDICATION
     Route: 048
  2. ONDANSETRON. [Suspect]
     Active Substance: ONDANSETRON
     Indication: VOMITING IN PREGNANCY
     Dosage: 04 MG, Q6H
     Route: 065
     Dates: start: 20141227, end: 201501

REACTIONS (18)
  - Oligohydramnios [Unknown]
  - Emotional distress [Unknown]
  - Acute sinusitis [Unknown]
  - Irritability [Unknown]
  - Glucose tolerance impaired in pregnancy [Unknown]
  - Anxiety [Unknown]
  - Agitation [Unknown]
  - Gestational diabetes [Unknown]
  - Bipolar disorder [Unknown]
  - Maternal exposure during pregnancy [Unknown]
  - Upper respiratory tract infection [Unknown]
  - Depression [Unknown]
  - Perinatal depression [Unknown]
  - Injury [Unknown]
  - Product use issue [Unknown]
  - Pain [Unknown]
  - Stress [Unknown]
  - Thyroid dysfunction in pregnancy [Unknown]
